FAERS Safety Report 10881858 (Version 1)
Quarter: 2015Q1

REPORT INFORMATION
  Report Type: Spontaneous
  Country: US (occurrence: None)
  Receive Date: 20150225
  Receipt Date: 20150225
  Transmission Date: 20150721
  Serious: Yes (Other)
  Sender: FDA-Public Use
  Company Number: None

PATIENT
  Age: 16 Year
  Sex: Female
  Weight: 49.9 kg

DRUGS (6)
  1. GUANFACINE ER 2MG [Suspect]
     Active Substance: GUANFACINE
     Indication: IMPULSIVE BEHAVIOUR
     Route: 048
     Dates: start: 20150103, end: 20150208
  2. GUANFACINE ER 2MG [Suspect]
     Active Substance: GUANFACINE
     Indication: ATTENTION DEFICIT/HYPERACTIVITY DISORDER
     Route: 048
     Dates: start: 20150103, end: 20150208
  3. INTUNIV [Concomitant]
     Active Substance: GUANFACINE HYDROCHLORIDE
  4. GUANFACINE ER 2MG [Suspect]
     Active Substance: GUANFACINE
     Indication: AGGRESSION
     Route: 048
     Dates: start: 20150103, end: 20150208
  5. ABILIFY [Concomitant]
     Active Substance: ARIPIPRAZOLE
  6. GUANFACINE ER 2MG [Suspect]
     Active Substance: GUANFACINE
     Indication: ABNORMAL BEHAVIOUR
     Route: 048
     Dates: start: 20150103, end: 20150208

REACTIONS (5)
  - Abnormal behaviour [None]
  - Aggression [None]
  - Product substitution issue [None]
  - Agitation [None]
  - Drug ineffective [None]

NARRATIVE: CASE EVENT DATE: 20150103
